FAERS Safety Report 11540751 (Version 3)
Quarter: 2016Q1

REPORT INFORMATION
  Report Type: Spontaneous
  Country: FR (occurrence: FR)
  Receive Date: 20150923
  Receipt Date: 20160107
  Transmission Date: 20160525
  Serious: Yes (Hospitalization, Other)
  Sender: FDA-Public Use
  Company Number: FR-GLAXOSMITHKLINE-FR2015GSK135438

PATIENT
  Age: 33 Year
  Sex: Female

DRUGS (9)
  1. ZELITREX [Concomitant]
     Active Substance: VALACYCLOVIR HYDROCHLORIDE
  2. LAMICTAL [Suspect]
     Active Substance: LAMOTRIGINE
     Dosage: 100 MG, UNK
  3. LYSANXIA [Concomitant]
     Active Substance: PRAZEPAM
     Dosage: 10 MG, U
  4. LAMICTAL [Suspect]
     Active Substance: LAMOTRIGINE
     Indication: DEPRESSION
     Dosage: 50 MG, QD
     Route: 048
     Dates: start: 20150702, end: 20150824
  5. SOLIAN [Suspect]
     Active Substance: AMISULPRIDE
     Indication: DEPRESSION
     Dosage: 50 MG, QD
     Route: 048
     Dates: start: 20150731
  6. SEROPLEX [Concomitant]
     Active Substance: ESCITALOPRAM OXALATE
     Dosage: 5 MG, U
  7. XANAX [Concomitant]
     Active Substance: ALPRAZOLAM
  8. SOLIAN [Suspect]
     Active Substance: AMISULPRIDE
     Dosage: 100 MG, QD
     Dates: start: 20150820
  9. SOLIAN [Suspect]
     Active Substance: AMISULPRIDE
     Dosage: 50 MG, QD
     Dates: start: 20150824

REACTIONS (2)
  - Incorrect dose administered [Unknown]
  - Drug reaction with eosinophilia and systemic symptoms [Recovering/Resolving]

NARRATIVE: CASE EVENT DATE: 20150702
